FAERS Safety Report 25319111 (Version 1)
Quarter: 2025Q2

REPORT INFORMATION
  Report Type: Spontaneous
  Country: US (occurrence: None)
  Receive Date: 20250514
  Receipt Date: 20250514
  Transmission Date: 20250716
  Serious: No
  Sender: FDA-CTU
  Company Number: None

PATIENT
  Age: 48 Year
  Sex: Female

DRUGS (2)
  1. RYDAPT [Suspect]
     Active Substance: MIDOSTAURIN
     Indication: Acute myeloid leukaemia
  2. CYTARABINE [Suspect]
     Active Substance: CYTARABINE

REACTIONS (5)
  - Gastrointestinal mucosal exfoliation [None]
  - Gastrointestinal haemorrhage [None]
  - Platelet count decreased [None]
  - Transfusion [None]
  - Swelling [None]

NARRATIVE: CASE EVENT DATE: 20250513
